FAERS Safety Report 4519299-6 (Version None)
Quarter: 2004Q4

REPORT INFORMATION
  Report Type: 
  Country: None (occurrence: None)
  Receive Date: 20041206
  Receipt Date: 20041129
  Transmission Date: 20050328
  Serious: Yes (Hospitalization)
  Sender: FDA-Public Use
  Company Number: US-GLAXOSMITHKLINE-A0535383A

PATIENT
  Age: 63 Year
  Sex: Female

DRUGS (5)
  1. WELLBUTRIN [Suspect]
     Indication: DEPRESSION
     Dosage: 200MG TWICE PER DAY
     Route: 048
  2. VITAMIN [Concomitant]
  3. ADVIL [Concomitant]
  4. AMBIEN [Concomitant]
  5. CALCIUM [Concomitant]

REACTIONS (7)
  - ACCIDENTAL OVERDOSE [None]
  - APHASIA [None]
  - BRADYPHRENIA [None]
  - FALL [None]
  - IMMOBILE [None]
  - INSOMNIA [None]
  - SPEECH DISORDER [None]
